FAERS Safety Report 6109452-2 (Version None)
Quarter: 2009Q1

REPORT INFORMATION
  Report Type: 
  Country: None (occurrence: None)
  Receive Date: 20090306
  Receipt Date: 20090226
  Transmission Date: 20090719
  Serious: Yes (Hospitalization)
  Sender: FDA-Public Use
  Company Number: DSA_32919_2008

PATIENT
  Age: 86 Year
  Sex: Female

DRUGS (16)
  1. CARDIZEM CD [Suspect]
     Dosage: (240 MG QD ORAL)
     Route: 048
     Dates: start: 19990101, end: 20080601
  2. CARDIZEM CD [Suspect]
     Dosage: (240 MG QD ORAL)
     Route: 048
     Dates: start: 20080701
  3. CARDIZEM LA [Suspect]
     Indication: DRUG USE FOR UNKNOWN INDICATION
     Dosage: (240 MG QD ORAL)
     Route: 048
     Dates: start: 20080601, end: 20080701
  4. SYNTHROID [Concomitant]
  5. LISINOPRIL [Concomitant]
  6. ADVAIR HFA [Concomitant]
  7. LESCOL /01224502/ [Concomitant]
  8. NEXIUM [Concomitant]
  9. XANAX [Concomitant]
  10. NASONBEX [Concomitant]
  11. E VITAMIN [Concomitant]
  12. M.V.I. [Concomitant]
  13. OSCAL /00108001/ [Concomitant]
  14. ASPIRIN [Concomitant]
  15. CYMBALTA [Concomitant]
  16. PLAVIX [Concomitant]

REACTIONS (2)
  - ANGINA PECTORIS [None]
  - ARRHYTHMIA [None]
